FAERS Safety Report 10253759 (Version 2)
Quarter: 2014Q2

REPORT INFORMATION
  Report Type: Spontaneous
  Country: IT (occurrence: IT)
  Receive Date: 20140623
  Receipt Date: 20140623
  Transmission Date: 20141212
  Serious: Yes (Life-Threatening, Other)
  Sender: FDA-Public Use
  Company Number: PHBS2007IT06635

PATIENT
  Age: 59 Year
  Sex: Female

DRUGS (1)
  1. TIMOLOL [Suspect]
     Route: 047

REACTIONS (10)
  - Cardiac arrest [Recovered/Resolved]
  - Hypotension [Recovered/Resolved]
  - Atrial fibrillation [Unknown]
  - Electrocardiogram abnormal [Unknown]
  - Cardiac septal hypertrophy [Unknown]
  - Dilatation atrial [Unknown]
  - Mitral valve incompetence [Unknown]
  - Tricuspid valve incompetence [Unknown]
  - Supraventricular extrasystoles [Unknown]
  - Blood cholesterol increased [Unknown]
